FAERS Safety Report 7422332-5 (Version None)
Quarter: 2011Q2

REPORT INFORMATION
  Report Type: 
  Country: None (occurrence: None)
  Receive Date: 20110419
  Receipt Date: 20110407
  Transmission Date: 20111010
  Serious: No
  Sender: FDA-Public Use
  Company Number: US-BIOGENIDEC-2010BI031209

PATIENT
  Age: 55 Year
  Sex: Female

DRUGS (1)
  1. TYSABRI [Suspect]
     Indication: MULTIPLE SCLEROSIS
     Route: 042
     Dates: start: 20100804, end: 20110223

REACTIONS (10)
  - ASTHENIA [None]
  - TREMOR [None]
  - SEDATION [None]
  - WHITE BLOOD CELL COUNT INCREASED [None]
  - FLUSHING [None]
  - MUSCULAR WEAKNESS [None]
  - PERIPHERAL COLDNESS [None]
  - DIZZINESS [None]
  - ALOPECIA [None]
  - NAUSEA [None]
